FAERS Safety Report 12466220 (Version 1)
Quarter: 2016Q2

REPORT INFORMATION
  Report Type: Spontaneous
  Country: US (occurrence: US)
  Receive Date: 20160603
  Receipt Date: 20160603
  Transmission Date: 20160815
  Serious: Yes (Hospitalization, Other)
  Sender: FDA-Public Use
  Company Number: US-TEVA-662981USA

PATIENT
  Age: 90 Year
  Sex: Female

DRUGS (2)
  1. ALBUTEROL NEBULIZING [Concomitant]
  2. PROAIR HFA [Suspect]
     Active Substance: ALBUTEROL SULFATE
     Indication: DYSPNOEA
     Dosage: EVERY FOUR TO SIX HOURS

REACTIONS (7)
  - Intentional product use issue [Unknown]
  - Bronchitis [Unknown]
  - Malaise [Not Recovered/Not Resolved]
  - Oxygen supplementation [Unknown]
  - Product use issue [Unknown]
  - Dyspnoea [Not Recovered/Not Resolved]
  - Chronic obstructive pulmonary disease [Not Recovered/Not Resolved]

NARRATIVE: CASE EVENT DATE: 2016
